FAERS Safety Report 17331482 (Version 1)
Quarter: 2020Q1

REPORT INFORMATION
  Report Type: Spontaneous
  Country: US (occurrence: US)
  Receive Date: 20200127
  Receipt Date: 20200127
  Transmission Date: 20200409
  Serious: No
  Sender: FDA-Public Use
  Company Number: US-009507513-2001USA008135

PATIENT
  Age: 35 Year
  Sex: Female

DRUGS (9)
  1. ENDOMETRIN [Suspect]
     Active Substance: PROGESTERONE
     Indication: INFERTILITY FEMALE
     Dosage: 1 TAB 3 TIMES DAILY
     Route: 067
     Dates: start: 20191114
  2. AZITHROMYCIN ANHYDROUS. [Concomitant]
     Active Substance: AZITHROMYCIN ANHYDROUS
  3. METHYLPREDNISOLONE. [Concomitant]
     Active Substance: METHYLPREDNISOLONE
  4. GANIRELIX ACETATE INJECTION [Concomitant]
     Active Substance: GANIRELIX ACETATE
  5. LEUPROLIDE [Concomitant]
     Active Substance: LEUPROLIDE
  6. FOLLISTIM AQ [Suspect]
     Active Substance: FOLLITROPIN
  7. MENOPUR [Concomitant]
     Active Substance: FOLLITROPIN\LUTEINIZING HORMONE
  8. FOLLISTIM AQ [Suspect]
     Active Substance: FOLLITROPIN
     Indication: INFERTILITY FEMALE
     Dosage: 150 UNITS EVERY DAY
     Route: 058
     Dates: start: 20191114
  9. PREGNYL [Concomitant]
     Active Substance: CHORIOGONADOTROPIN ALFA

REACTIONS (1)
  - Abdominal distension [Unknown]

NARRATIVE: CASE EVENT DATE: 20200101
